FAERS Safety Report 11828772 (Version 2)
Quarter: 2016Q1

REPORT INFORMATION
  Report Type: Spontaneous
  Country: HR (occurrence: HR)
  Receive Date: 20151211
  Receipt Date: 20160307
  Transmission Date: 20160525
  Serious: No
  Sender: FDA-Public Use
  Company Number: HR-CELGENE-HRV-2015117874

PATIENT
  Age: 77 Year
  Sex: Female

DRUGS (5)
  1. BISOPROLOL [Concomitant]
     Active Substance: BISOPROLOL
     Indication: ATRIAL FIBRILLATION
     Route: 065
  2. AZACITIDINE INJECTABLE [Suspect]
     Active Substance: AZACITIDINE
     Indication: MYELODYSPLASTIC SYNDROME
     Route: 058
     Dates: start: 20140319
  3. ALLOPURINOL. [Concomitant]
     Active Substance: ALLOPURINOL
     Indication: HYPERURICAEMIA
     Route: 065
  4. PORTALAK [Concomitant]
     Indication: CONSTIPATION
     Dosage: 2 SPOONS IN 200ML OF WATER
     Route: 065
  5. FOLACIN [Concomitant]
     Active Substance: FOLIC ACID
     Indication: MYELODYSPLASTIC SYNDROME
     Route: 065

REACTIONS (2)
  - Transfusion reaction [Recovered/Resolved]
  - Cellulitis [Recovered/Resolved]
